FAERS Safety Report 8871510 (Version 1)
Quarter: 2012Q4

REPORT INFORMATION
  Report Type: Spontaneous
  Country: US (occurrence: None)
  Receive Date: 20121026
  Receipt Date: 20121026
  Transmission Date: 20130627
  Serious: Yes (Hospitalization)
  Sender: FDA-Public Use
  Company Number: None

PATIENT
  Age: 77 Year
  Sex: Female
  Weight: 68.04 kg

DRUGS (2)
  1. CYMBALTA [Suspect]
     Dates: start: 20100301, end: 20120806
  2. CYMBALTA [Suspect]
     Dates: start: 20100301, end: 20120806

REACTIONS (6)
  - Hyperhidrosis [None]
  - Contusion [None]
  - Weight increased [None]
  - Hallucination [None]
  - Feeling abnormal [None]
  - Fear [None]
